FAERS Safety Report 5196000-7 (Version None)
Quarter: 2006Q4

REPORT INFORMATION
  Report Type: 
  Country: None (occurrence: None)
  Receive Date: 20061227
  Receipt Date: 20061227
  Transmission Date: 20070319
  Serious: Yes (Other)
  Sender: FDA-Public Use
  Company Number: None

PATIENT
  Age: 89 Year
  Sex: Female
  Weight: 48.5349 kg

DRUGS (7)
  1. ARICEPT [Suspect]
     Indication: DEMENTIA
     Dosage: 5MG ORAL DAILY
     Route: 048
  2. ASPIRIN [Concomitant]
  3. CARDURA/DOXAZOSN [Concomitant]
  4. LIPITOR [Concomitant]
  5. HYZAAR [Concomitant]
  6. TOPROL-XL [Concomitant]
  7. DIGITEK [Concomitant]

REACTIONS (4)
  - CLAVICLE FRACTURE [None]
  - FALL [None]
  - HALLUCINATION [None]
  - INSOMNIA [None]
